FAERS Safety Report 4645767-2 (Version None)
Quarter: 2005Q2

REPORT INFORMATION
  Report Type: 
  Country: None (occurrence: None)
  Receive Date: 20050425
  Receipt Date: 20050413
  Transmission Date: 20051028
  Serious: Yes (Hospitalization)
  Sender: FDA-Public Use
  Company Number: 2005AP02287

PATIENT
  Age: 67 Year
  Sex: Male
  Weight: 50.45 kg

DRUGS (11)
  1. IRESSA [Suspect]
     Indication: ADENOSQUAMOUS CELL LUNG CANCER
     Dosage: 250 MG DAILY PO
     Route: 048
     Dates: start: 20050314, end: 20050412
  2. IRESSA [Suspect]
     Indication: NON-SMALL CELL LUNG CANCER
     Dosage: 250 MG DAILY PO
     Route: 048
     Dates: start: 20050314, end: 20050412
  3. SELBEX [Concomitant]
  4. ALPRAZOLAM [Concomitant]
  5. LUDIOMIL [Concomitant]
  6. OMEPRAZOLE [Concomitant]
  7. PREDONINE [Concomitant]
  8. MAGNESIUM OXIDE [Concomitant]
  9. ACUATIM [Concomitant]
  10. EURAX H [Concomitant]
  11. UREPEARL [Concomitant]

REACTIONS (4)
  - ANOREXIA [None]
  - HYPONATRAEMIA [None]
  - PYREXIA [None]
  - RASH [None]
